FAERS Safety Report 8597698-3 (Version None)
Quarter: 2012Q3

REPORT INFORMATION
  Report Type: 
  Country: None (occurrence: None)
  Receive Date: 20120816
  Receipt Date: 20120814
  Transmission Date: 20120928
  Serious: Yes (Other)
  Sender: FDA-Public Use
  Company Number: US-PFIZER INC-2012199566

PATIENT
  Age: 57 Year
  Sex: Female
  Weight: 74.83 kg

DRUGS (11)
  1. RELAFEN [Concomitant]
     Indication: FIBROMYALGIA
     Dosage: 500 MG, 2X/DAY
     Route: 048
  2. OXYCODONE [Concomitant]
     Indication: BACK PAIN
     Dosage: 10 MG, 4X/DAY
  3. OXYCODONE [Concomitant]
     Indication: FIBROMYALGIA
  4. SOMA [Concomitant]
     Indication: MUSCLE RELAXANT THERAPY
     Dosage: 350 MG, 4X/DAY
     Route: 048
  5. SYNTHROID [Concomitant]
     Indication: HYPOTHYROIDISM
     Dosage: 0.05 MG, FIVE DAYS A WEEK
     Route: 048
  6. MORPHINE SULFATE [Concomitant]
     Indication: PAIN
     Dosage: 100 MG, 2X/DAY
  7. SIMVASTATIN [Concomitant]
     Indication: BLOOD CHOLESTEROL INCREASED
     Dosage: 30 MG, DAILY
  8. XANAX [Suspect]
     Indication: SLEEP DISORDER
     Dosage: UNK
     Route: 048
  9. NICOTROL [Suspect]
     Indication: SMOKING CESSATION THERAPY
     Dosage: UNK
     Dates: start: 20120813
  10. OXYCODONE [Concomitant]
     Indication: NECK PAIN
  11. ASPIRIN [Concomitant]
     Indication: BLOOD CHOLESTEROL INCREASED
     Dosage: 81 MG, DAILY

REACTIONS (1)
  - GALLBLADDER DISORDER [None]
